FAERS Safety Report 6772007-0 (Version None)
Quarter: 2010Q2

REPORT INFORMATION
  Report Type: 
  Country: None (occurrence: None)
  Receive Date: 20100616
  Receipt Date: 20090626
  Transmission Date: 20101027
  Serious: No
  Sender: FDA-Public Use
  Company Number: US-ASTRAZENECA-2009UW12682

PATIENT
  Sex: Male
  Weight: 81.6 kg

DRUGS (2)
  1. RHINOCORT [Suspect]
     Indication: NASAL DISORDER
     Dosage: ONE PUMP IN EACH NOSE
     Route: 045
  2. ALLEGRA [Concomitant]

REACTIONS (1)
  - INSOMNIA [None]
